FAERS Safety Report 8914126 (Version 1)
Quarter: 2012Q4

REPORT INFORMATION
  Report Type: 
  Country: JP (occurrence: JP)
  Receive Date: 20121119
  Receipt Date: 20121119
  Transmission Date: 20130627
  Serious: Yes (Other)
  Sender: FDA-Public Use
  Company Number: JP-AMGEN-JPNSP2012073095

PATIENT

DRUGS (3)
  1. VECTIBIX [Suspect]
     Indication: LARGE INTESTINE CARCINOMA
     Dosage: UNK UNK, q2wk
     Route: 041
     Dates: start: 20121015, end: 20121015
  2. LOXONIN [Suspect]
     Dosage: UNK UNK, UNK
     Route: 065
  3. PROMAC                             /00024401/ [Concomitant]
     Dosage: UNK UNK, UNK
     Route: 048

REACTIONS (2)
  - Gastrointestinal haemorrhage [Unknown]
  - Anaemia [Unknown]
